FAERS Safety Report 7276190-2 (Version None)
Quarter: 2011Q1

REPORT INFORMATION
  Report Type: 
  Country: None (occurrence: None)
  Receive Date: 20110204
  Receipt Date: 20110127
  Transmission Date: 20110831
  Serious: Yes (Other)
  Sender: FDA-Public Use
  Company Number: PHHY2010JP86285

PATIENT
  Age: 1 Year
  Sex: Female

DRUGS (5)
  1. BUSULFAN [Suspect]
     Indication: CORD BLOOD TRANSPLANT THERAPY
     Dosage: UNK
  2. CYCLOPHOSPHAMIDE [Suspect]
     Indication: CORD BLOOD TRANSPLANT THERAPY
  3. METHOTREXATE [Concomitant]
     Dosage: UNK
  4. SANDIMMUNE [Suspect]
     Indication: CORD BLOOD TRANSPLANT THERAPY
     Dosage: UNK
     Route: 048
  5. ANTI-HUMAN THYMOCYTE IMMUNOGLOBULIN,RABBIT [Suspect]
     Indication: CORD BLOOD TRANSPLANT THERAPY

REACTIONS (1)
  - HEPATIC VEIN OCCLUSION [None]
